FAERS Safety Report 12805580 (Version 2)
Quarter: 2016Q4

REPORT INFORMATION
  Report Type: Spontaneous
  Country: US (occurrence: US)
  Receive Date: 20161004
  Receipt Date: 20161129
  Transmission Date: 20170207
  Serious: Yes (Hospitalization, Other)
  Sender: FDA-Public Use
  Company Number: US-BRISTOL-MYERS SQUIBB COMPANY-BMS-2016-080200

PATIENT
  Age: 73 Year
  Sex: Male
  Weight: 65.4 kg

DRUGS (5)
  1. DURVALUMAB [Suspect]
     Active Substance: DURVALUMAB
     Indication: NEOPLASM
     Dosage: 10 MG/KG, 655MG
     Route: 042
     Dates: start: 20160803, end: 20160817
  2. ELIQUIS [Suspect]
     Active Substance: APIXABAN
     Indication: CEREBROVASCULAR ACCIDENT PROPHYLAXIS
     Dosage: 2.5 MG, BID
     Route: 065
     Dates: start: 201501, end: 20160817
  3. EPACADOSTAT [Suspect]
     Active Substance: EPACADOSTAT
     Indication: NON-SMALL CELL LUNG CANCER
     Dosage: 100 MG, BID
     Route: 048
     Dates: start: 20160824
  4. EPACADOSTAT [Suspect]
     Active Substance: EPACADOSTAT
     Indication: NEOPLASM
     Dosage: 100 MG, BID
     Route: 048
     Dates: start: 20160803, end: 20160817
  5. DURVALUMAB [Suspect]
     Active Substance: DURVALUMAB
     Indication: NON-SMALL CELL LUNG CANCER
     Dosage: 10 MG/KG, 655MG
     Route: 042
     Dates: start: 20160824

REACTIONS (2)
  - Packed red blood cell transfusion [Unknown]
  - Anaemia [Recovered/Resolved]

NARRATIVE: CASE EVENT DATE: 20160817
